FAERS Safety Report 11191733 (Version 3)
Quarter: 2015Q3

REPORT INFORMATION
  Report Type: Spontaneous
  Country: US (occurrence: US)
  Receive Date: 20150616
  Receipt Date: 20150817
  Transmission Date: 20151125
  Serious: Yes (Other)
  Sender: FDA-Public Use
  Company Number: US-AMGEN-USASP2015057780

PATIENT
  Age: 58 Year
  Sex: Male

DRUGS (1)
  1. ENBREL [Suspect]
     Active Substance: ETANERCEPT
     Indication: ANKYLOSING SPONDYLITIS
     Dosage: 50 MG, QWK
     Route: 058
     Dates: start: 20041129

REACTIONS (6)
  - Cataract [Not Recovered/Not Resolved]
  - Cataract operation [Recovered/Resolved]
  - Macular detachment [Not Recovered/Not Resolved]
  - Blindness unilateral [Not Recovered/Not Resolved]
  - Retinal tear [Not Recovered/Not Resolved]
  - Spinal compression fracture [Unknown]

NARRATIVE: CASE EVENT DATE: 201009
